FAERS Safety Report 5817003-2 (Version None)
Quarter: 2008Q3

REPORT INFORMATION
  Report Type: 
  Country: None (occurrence: None)
  Receive Date: 20080722
  Receipt Date: 20080710
  Transmission Date: 20090109
  Serious: Yes (Life-Threatening, Other)
  Sender: FDA-Public Use
  Company Number: US-BAYER-200827659NA

PATIENT
  Sex: Male

DRUGS (6)
  1. MAGNEVIST [Suspect]
     Indication: NUCLEAR MAGNETIC RESONANCE IMAGING
     Dates: start: 20041129, end: 20041129
  2. MAGNEVIST [Suspect]
     Dates: start: 20060310, end: 20060310
  3. MAGNEVIST [Suspect]
     Dates: start: 20060315, end: 20060315
  4. MAGNEVIST [Suspect]
     Dates: start: 20060730, end: 20060730
  5. OMNISCAN [Suspect]
     Indication: ANGIOGRAM
     Dates: start: 20060610, end: 20060610
  6. OMNISCAN [Suspect]
     Dates: start: 20060617, end: 20060617

REACTIONS (4)
  - ANXIETY [None]
  - INJURY [None]
  - NEPHROGENIC SYSTEMIC FIBROSIS [None]
  - PAIN [None]
